FAERS Safety Report 5598465-5 (Version None)
Quarter: 2008Q1

REPORT INFORMATION
  Report Type: 
  Country: None (occurrence: None)
  Receive Date: 20080122
  Receipt Date: 20080115
  Transmission Date: 20080703
  Serious: Yes (Other)
  Sender: FDA-Public Use
  Company Number: US-JNJFOC-20070902791

PATIENT
  Sex: Female
  Weight: 51.26 kg

DRUGS (5)
  1. TOPAMAX [Suspect]
     Dosage: 2 25 MG TABLETS IN AM; 2 25 MG TABLETS IN PM
     Route: 048
     Dates: start: 20070601
  2. TOPAMAX [Suspect]
     Indication: MIGRAINE PROPHYLAXIS
     Dosage: 25-75 MG
     Route: 048
     Dates: start: 20070601
  3. CONTRACEPTIVE [Concomitant]
     Indication: HORMONE LEVEL ABNORMAL
  4. RELPAX [Concomitant]
     Indication: MIGRAINE
  5. ANTIBIOTIC [Concomitant]

REACTIONS (5)
  - ANOREXIA [None]
  - ATRIAL FIBRILLATION [None]
  - DRUG INEFFECTIVE [None]
  - SINUSITIS [None]
  - WEIGHT DECREASED [None]
